FAERS Safety Report 11673846 (Version 2)
Quarter: 2015Q4

REPORT INFORMATION
  Report Type: Spontaneous
  Country: US (occurrence: US)
  Receive Date: 20151028
  Receipt Date: 20151124
  Transmission Date: 20160304
  Serious: No
  Sender: FDA-Public Use
  Company Number: US-ASTRAZENECA-2015SF00801

PATIENT
  Age: 21963 Day
  Sex: Female
  Weight: 108.9 kg

DRUGS (7)
  1. FELODIPINE. [Concomitant]
     Active Substance: FELODIPINE
  2. LOSARTAN. [Concomitant]
     Active Substance: LOSARTAN
     Indication: BLOOD PRESSURE ABNORMAL
  3. COUMADIN [Concomitant]
     Active Substance: WARFARIN SODIUM
  4. ALLOPURINOL. [Concomitant]
     Active Substance: ALLOPURINOL
  5. METOPROLOL [Suspect]
     Active Substance: METOPROLOL
     Indication: HYPERTENSION
     Route: 048
  6. ONGLYZA [Suspect]
     Active Substance: SAXAGLIPTIN HYDROCHLORIDE
     Indication: BLOOD GLUCOSE INCREASED
     Route: 048
     Dates: start: 20151012
  7. H.P. ACTHAR [Concomitant]
     Active Substance: CORTICOTROPIN

REACTIONS (6)
  - Decreased appetite [Not Recovered/Not Resolved]
  - Nausea [Recovered/Resolved]
  - Vision blurred [Unknown]
  - Diabetes mellitus [Unknown]
  - Dysgeusia [Not Recovered/Not Resolved]
  - Headache [Unknown]

NARRATIVE: CASE EVENT DATE: 20151012
